FAERS Safety Report 9458248 (Version 1)
Quarter: 2013Q3

REPORT INFORMATION
  Report Type: Spontaneous
  Country: US (occurrence: None)
  Receive Date: 20130813
  Receipt Date: 20130813
  Transmission Date: 20140515
  Serious: Yes (Disabling)
  Sender: FDA-Public Use
  Company Number: None

PATIENT
  Age: 65 Year
  Sex: Male
  Weight: 95.26 kg

DRUGS (3)
  1. HYDROCODONE + ACETAMINOPHEN [Suspect]
     Indication: SPINAL OSTEOARTHRITIS
     Dosage: 1-2 TABS FOUR TIMES DAILY TAKEN BY MOUTH
     Route: 048
     Dates: start: 20070101, end: 20130812
  2. HYDROCODONE + ACETAMINOPHEN [Suspect]
     Indication: SPINAL COLUMN INJURY
     Dosage: 1-2 TABS FOUR TIMES DAILY TAKEN BY MOUTH
     Route: 048
     Dates: start: 20070101, end: 20130812
  3. HYDROCODONE + ACETAMINOPHEN [Suspect]
     Indication: SPONDYLITIS
     Dosage: 1-2 TABS FOUR TIMES DAILY TAKEN BY MOUTH
     Route: 048
     Dates: start: 20070101, end: 20130812

REACTIONS (2)
  - Drug ineffective [None]
  - Product substitution issue [None]
